FAERS Safety Report 11515652 (Version 15)
Quarter: 2018Q3

REPORT INFORMATION
  Report Type: Report from Study
  Country: AU (occurrence: AU)
  Receive Date: 20150916
  Receipt Date: 20180703
  Transmission Date: 20181010
  Serious: Yes (Hospitalization, Other)
  Sender: FDA-Public Use
  Company Number: AU-SA-2015SA100779

PATIENT
  Age: 28 Year
  Sex: Female

DRUGS (17)
  1. ASTRAFORTE [Concomitant]
     Indication: PROPHYLAXIS
     Dosage: 2 DF,UNK
     Route: 048
     Dates: start: 201302, end: 20150815
  2. CYMBALTA [Concomitant]
     Active Substance: DULOXETINE HYDROCHLORIDE
     Indication: DRUG THERAPY
     Dosage: 60 MG,QD
     Route: 048
     Dates: start: 2012
  3. PROCHLORPERAZINE. [Concomitant]
     Active Substance: PROCHLORPERAZINE
     Indication: VOMITING
  4. ERGOCALCIFEROL. [Concomitant]
     Active Substance: ERGOCALCIFEROL
     Indication: PROPHYLAXIS
     Dosage: 2 DF,QD
     Route: 048
     Dates: start: 201210
  5. ALEMTUZUMAB [Suspect]
     Active Substance: ALEMTUZUMAB
     Indication: MULTIPLE SCLEROSIS RELAPSE
     Dosage: 12 MG,QD
     Route: 041
     Dates: start: 20150622, end: 20150626
  6. CYMBALTA [Concomitant]
     Active Substance: DULOXETINE HYDROCHLORIDE
     Indication: MULTIPLE SCLEROSIS
  7. VALACICLOVIR [Concomitant]
     Active Substance: VALACYCLOVIR HYDROCHLORIDE
     Indication: PROPHYLAXIS
     Dosage: 500 MG,QD
     Route: 048
     Dates: start: 20150621
  8. PANTOPRAZOLE [Concomitant]
     Active Substance: PANTOPRAZOLE
     Dosage: 80 MG,QD
     Route: 048
     Dates: start: 20150903
  9. ONDANSETRON [Concomitant]
     Active Substance: ONDANSETRON
     Indication: VOMITING
  10. MODAFINIL. [Concomitant]
     Active Substance: MODAFINIL
     Indication: MULTIPLE SCLEROSIS
     Dosage: 100 MG,QD
     Route: 048
     Dates: start: 20151001, end: 20151018
  11. MAGNESIUM [Concomitant]
     Active Substance: MAGNESIUM
     Indication: PROPHYLAXIS
     Dosage: 2 DF,QD
     Route: 048
     Dates: start: 201302
  12. ONDANSETRON [Concomitant]
     Active Substance: ONDANSETRON
     Indication: NAUSEA
     Dosage: 4 MG,QD
     Route: 048
     Dates: start: 20150829, end: 20150829
  13. PROCHLORPERAZINE. [Concomitant]
     Active Substance: PROCHLORPERAZINE
     Indication: NAUSEA
     Dosage: 5 MG,QD
     Route: 048
  14. SYMMETREL [Concomitant]
     Active Substance: AMANTADINE HYDROCHLORIDE
     Indication: MULTIPLE SCLEROSIS
  15. SYMMETREL [Concomitant]
     Active Substance: AMANTADINE HYDROCHLORIDE
     Indication: DRUG THERAPY
     Dosage: 100 MG,QD
     Route: 048
     Dates: start: 2012
  16. LEVLEN [Concomitant]
     Active Substance: ETHINYL ESTRADIOL\LEVONORGESTREL
     Indication: PROPHYLAXIS
     Dosage: 2 DF,QD
     Route: 048
     Dates: start: 20150618
  17. MODAFINIL. [Concomitant]
     Active Substance: MODAFINIL
     Dosage: 100 MG,QD
     Route: 048
     Dates: start: 20150713, end: 20150831

REACTIONS (20)
  - Palpitations [Recovered/Resolved]
  - Vomiting [Recovered/Resolved]
  - Throat tightness [Recovered/Resolved]
  - Vomiting [Recovered/Resolved]
  - Gastroenteritis eosinophilic [Recovered/Resolved]
  - Neck pain [Recovered/Resolved]
  - Iron deficiency [Not Recovered/Not Resolved]
  - Sensory disturbance [Recovered/Resolved]
  - Rash [Recovered/Resolved]
  - Hypotension [Recovered/Resolved]
  - Vomiting [Recovered/Resolved]
  - Multiple sclerosis relapse [Recovered/Resolved]
  - Sensory disturbance [Not Recovered/Not Resolved]
  - Pain [Not Recovered/Not Resolved]
  - Anal incontinence [Recovered/Resolved]
  - Muscle contracture [Not Recovered/Not Resolved]
  - Nausea [Recovered/Resolved]
  - Muscular weakness [Not Recovered/Not Resolved]
  - Chest discomfort [Recovered/Resolved]
  - Headache [Not Recovered/Not Resolved]

NARRATIVE: CASE EVENT DATE: 20150622
